FAERS Safety Report 9571574 (Version 4)
Quarter: 2014Q1

REPORT INFORMATION
  Report Type: Report from Study
  Country: US (occurrence: US)
  Receive Date: 20131001
  Receipt Date: 20140327
  Transmission Date: 20141002
  Serious: Yes (Hospitalization, Other)
  Sender: FDA-Public Use
  Company Number: US-SA-CAMP-1002791

PATIENT
  Age: 33 Year
  Sex: Female
  Weight: 52.61 kg

DRUGS (12)
  1. ALEMTUZUMAB [Suspect]
     Indication: MULTIPLE SCLEROSIS
     Dosage: UNK UNK, UNK
     Route: 042
     Dates: start: 20031208, end: 20031212
  2. ALEMTUZUMAB [Suspect]
     Indication: MULTIPLE SCLEROSIS
     Dosage: UNK UNK, UNK
     Route: 042
     Dates: start: 20050221, end: 20050223
  3. ALEMTUZUMAB [Suspect]
     Indication: MULTIPLE SCLEROSIS
     Dosage: UNK UNK, UNK
     Route: 042
     Dates: start: 20090309, end: 20090311
  4. METHYLPREDNISOLONE [Concomitant]
     Route: 042
     Dates: start: 20031208, end: 20031210
  5. METHYLPREDNISOLONE [Concomitant]
     Route: 042
     Dates: start: 20050221, end: 20050223
  6. METHYLPREDNISOLONE [Concomitant]
     Route: 042
     Dates: start: 20090309, end: 20090311
  7. LACTATED RINGER^S INJECTION [Concomitant]
     Dosage: 10 ML, Q1HR
     Route: 042
     Dates: start: 20130125, end: 20130125
  8. ANCEF [Concomitant]
     Dosage: 1 G, ONCE
     Route: 042
     Dates: start: 20130125, end: 20130125
  9. COLACE [Concomitant]
     Indication: CONSTIPATION
     Dosage: 100 MG, PRN
  10. DROSPIRENONE/ETHINYLESTRADIOL [Concomitant]
     Indication: PROPHYLAXIS
     Route: 048
     Dates: start: 20121125
  11. DROSPIRENONE/ETHINYLESTRADIOL [Concomitant]
     Indication: CONTRACEPTION
     Route: 048
     Dates: start: 20121125
  12. TRIPLE ANTIBIOTIC OINTMENT [Concomitant]
     Route: 061
     Dates: start: 20121231, end: 20130106

REACTIONS (1)
  - Malignant melanoma [Recovered/Resolved]
